FAERS Safety Report 15984666 (Version 1)
Quarter: 2019Q1

REPORT INFORMATION
  Report Type: Other
  Country: CH (occurrence: CH)
  Receive Date: 20190220
  Receipt Date: 20190220
  Transmission Date: 20190418
  Serious: Yes (Death, Hospitalization, Other)
  Sender: FDA-Public Use
  Company Number: CH-ASTELLAS-2019US006040

PATIENT
  Age: 47 Year
  Sex: Female

DRUGS (22)
  1. PIPERACILLIN TAZOBACTAM PA [Interacting]
     Active Substance: PIPERACILLIN SODIUM\TAZOBACTAM SODIUM
     Indication: INFECTION
     Dosage: UNK UNK, UNKNOWN FREQ.
     Route: 041
     Dates: start: 20190120
  2. HALOPERIDOL. [Suspect]
     Active Substance: HALOPERIDOL
     Indication: AGITATION
     Route: 048
     Dates: start: 20190120
  3. TEMESTA                            /00273201/ [Suspect]
     Active Substance: LORAZEPAM
     Dosage: UNK UNK, UNKNOWN FREQ.
     Route: 048
  4. BETMIGA [Suspect]
     Active Substance: MIRABEGRON
     Indication: URINARY INCONTINENCE
     Route: 048
     Dates: start: 201804
  5. ATORVASTATINE                      /01326101/ [Concomitant]
     Active Substance: ATORVASTATIN
     Indication: HYPERCHOLESTEROLAEMIA
     Route: 048
     Dates: start: 20181119
  6. SPASMO-URGENIN NEO [Concomitant]
     Active Substance: TROSPIUM
     Indication: URINARY INCONTINENCE
     Route: 048
     Dates: start: 20190109
  7. CLOPIN ECO [Suspect]
     Active Substance: CLOZAPINE
     Indication: SCHIZOAFFECTIVE DISORDER
     Route: 048
     Dates: start: 20181204
  8. INDERAL [Suspect]
     Active Substance: PROPRANOLOL HYDROCHLORIDE
     Indication: TACHYCARDIA
     Dosage: 40 MG, ONCE DAILY (USUAL TREATMENT FOR SEVERAL YEARS)
     Route: 048
  9. CLARITHROMYCIN. [Interacting]
     Active Substance: CLARITHROMYCIN
     Indication: INFECTION
     Dosage: UNK UNK, UNKNOWN FREQ.
     Route: 048
     Dates: start: 20190120, end: 20190121
  10. SYMBICORT [Concomitant]
     Active Substance: BUDESONIDE\FORMOTEROL FUMARATE DIHYDRATE
     Indication: CHRONIC OBSTRUCTIVE PULMONARY DISEASE
     Dosage: 2 DF, (INHALATIONS) (BUDESONIDE 200 MICROG, FORMOTEROL 6 MICROG) ONCE DAILY
     Route: 050
     Dates: start: 20181216
  11. METFIN [Suspect]
     Active Substance: METFORMIN HYDROCHLORIDE
     Indication: TYPE 2 DIABETES MELLITUS
     Route: 048
     Dates: start: 20181119
  12. CERAZETTE                          /00754001/ [Concomitant]
     Active Substance: DESOGESTREL
     Indication: POLYCYSTIC OVARIES
     Dosage: 0.075 MG, ONCE DAILY
     Route: 048
     Dates: start: 20181130
  13. ELTROXIN [Concomitant]
     Active Substance: LEVOTHYROXINE
     Indication: HYPOTHYROIDISM
     Route: 048
     Dates: start: 201804
  14. CIPRALEX [Interacting]
     Active Substance: ESCITALOPRAM OXALATE
     Indication: SCHIZOAFFECTIVE DISORDER
     Route: 048
  15. TRANXILIUM [Concomitant]
     Active Substance: CLORAZEPATE DIPOTASSIUM
     Indication: SCHIZOAFFECTIVE DISORDER
     Route: 048
     Dates: start: 20181119
  16. DUSPATALIN                         /00139402/ [Concomitant]
     Active Substance: MEBEVERINE HYDROCHLORIDE
     Indication: IRRITABLE BOWEL SYNDROME
     Route: 048
     Dates: start: 20181119
  17. CLOPIN ECO [Suspect]
     Active Substance: CLOZAPINE
     Route: 048
     Dates: start: 20181220, end: 20190119
  18. TEMESTA                            /00273201/ [Suspect]
     Active Substance: LORAZEPAM
     Indication: SCHIZOAFFECTIVE DISORDER
     Dosage: 2.5 MG, AS NEEDED (MAXIMUM 2 PER DAY ON HAND)
     Route: 048
     Dates: start: 201805
  19. VENTOLIN [Interacting]
     Active Substance: ALBUTEROL SULFATE
     Indication: CHRONIC OBSTRUCTIVE PULMONARY DISEASE
     Dosage: 100 MG, (ON HAND MAXIMUM 4 PER DAY) AS NEEDED
     Route: 050
     Dates: start: 20181214
  20. DAFALGAN [Suspect]
     Active Substance: ACETAMINOPHEN
     Indication: PAIN
     Dosage: 1 G, (3 PER DAY ON HAND) AS NEEDED
     Route: 048
     Dates: start: 20181121
  21. ZOLPIDEM [Concomitant]
     Active Substance: ZOLPIDEM\ZOLPIDEM TARTRATE
     Indication: SCHIZOAFFECTIVE DISORDER
     Dosage: 10 MG, (ON HAND) ONCE DAILY
     Route: 048
     Dates: start: 20181126
  22. CALCIUM SANDOZ D [Concomitant]
     Indication: PRODUCT USED FOR UNKNOWN INDICATION
     Dosage: 1 DF, (CALCIUM 500 MG, CHOLECALCIFEROL 440 IU) UNKNOWN FREQ.
     Route: 048
     Dates: start: 20181123

REACTIONS (11)
  - Psychomotor hyperactivity [Unknown]
  - Cough [Not Recovered/Not Resolved]
  - Hypoxic-ischaemic encephalopathy [Unknown]
  - Multiple organ dysfunction syndrome [Unknown]
  - Brain oedema [Unknown]
  - Dyspnoea [Not Recovered/Not Resolved]
  - Oropharyngeal pain [Not Recovered/Not Resolved]
  - Cardiac arrest [Fatal]
  - Agranulocytosis [Not Recovered/Not Resolved]
  - Eschar [Unknown]
  - Pyrexia [Not Recovered/Not Resolved]

NARRATIVE: CASE EVENT DATE: 20190114
